FAERS Safety Report 6344830-8 (Version None)
Quarter: 2009Q3

REPORT INFORMATION
  Report Type: 
  Country: None (occurrence: None)
  Receive Date: 20090904
  Receipt Date: 20090821
  Transmission Date: 20100115
  Serious: Yes (Disabling, Other)
  Sender: FDA-Public Use
  Company Number: 2009IP000065

PATIENT
  Age: 83 Year
  Sex: Male

DRUGS (3)
  1. XIBROM [Suspect]
     Indication: MACULAR OEDEMA
     Dosage: BID; OPH
     Route: 047
     Dates: start: 20090715, end: 20090819
  2. COUMADIN [Concomitant]
  3. KENALOG [Concomitant]

REACTIONS (4)
  - CORNEAL PERFORATION [None]
  - ENDOPHTHALMITIS [None]
  - ULCERATIVE KERATITIS [None]
  - VISUAL ACUITY REDUCED [None]
